FAERS Safety Report 8888364 (Version 1)
Quarter: 2012Q4

REPORT INFORMATION
  Report Type: Report from Study
  Country: JP (occurrence: JP)
  Receive Date: 20121106
  Receipt Date: 20121106
  Transmission Date: 20130627
  Serious: Yes (Hospitalization)
  Sender: FDA-Public Use
  Company Number: PHHY2012JP073869

PATIENT
  Age: 51 Year
  Sex: Male

DRUGS (25)
  1. NEORAL [Suspect]
     Indication: DERMATITIS ATOPIC
     Dosage: 200 mg, UNK
     Route: 048
     Dates: start: 20100102, end: 20100630
  2. NEORAL [Suspect]
     Dosage: 150 mg, UNK
     Route: 048
     Dates: start: 20100701, end: 20100908
  3. NEORAL [Suspect]
     Dosage: 100 mg, UNK
     Route: 048
     Dates: start: 20100909, end: 20100922
  4. NEORAL [Suspect]
     Dosage: 200 mg, UNK
     Route: 048
     Dates: start: 20100923, end: 20101020
  5. NEORAL [Suspect]
     Dosage: 150 mg, UNK
     Route: 048
     Dates: start: 20101021, end: 20101110
  6. NEORAL [Suspect]
     Dosage: 200 mg, UNK
     Dates: start: 20101111, end: 20110111
  7. ATARAX-P [Concomitant]
     Indication: DERMATITIS ATOPIC
     Dosage: 25 mg, UNK
     Route: 048
     Dates: start: 20100602
  8. ATARAX-P [Concomitant]
     Dosage: 25 mg, UNK
     Route: 048
     Dates: start: 20110124
  9. LOCOID [Concomitant]
     Indication: DERMATITIS ATOPIC
     Dosage: 10 mg, UNK
     Route: 061
     Dates: start: 20100602
  10. LOCOID [Concomitant]
     Dosage: 5 mg, UNK
     Route: 061
     Dates: start: 20110124
  11. MYSER [Concomitant]
     Indication: DERMATITIS ATOPIC
     Dosage: 4 mg, UNK
     Route: 061
     Dates: start: 20100602
  12. FULMETA [Concomitant]
     Indication: DERMATITIS ATOPIC
     Dosage: 1 mg, UNK
     Route: 061
     Dates: start: 20100727
  13. FULMETA [Concomitant]
     Dosage: 1 mg, UNK
     Route: 048
     Dates: start: 20110124
  14. DIOVAN [Concomitant]
     Indication: HYPERTENSION
     Dosage: 40 mg, UNK
     Route: 048
     Dates: start: 20100602
  15. DIOVAN [Concomitant]
     Dosage: 40 mg, UNK
     Route: 048
     Dates: start: 20110124
  16. MUCOSTA [Concomitant]
     Dosage: 300 mg, UNK
     Route: 048
     Dates: start: 20100908, end: 20100922
  17. ALLEGRA [Concomitant]
     Indication: DERMATITIS ATOPIC
     Dosage: 120 mg, UNK
     Dates: start: 20100720, end: 20110111
  18. PREDNISOLONE [Concomitant]
     Indication: DERMATITIS ATOPIC
     Dosage: 10 mg, UNK
     Route: 048
     Dates: start: 20100908, end: 20100922
  19. DERMOVATE [Concomitant]
     Indication: DERMATITIS ATOPIC
     Dosage: 2.5 mg, UNK
     Route: 061
     Dates: start: 20100908
  20. DERMOVATE [Concomitant]
     Dosage: 10 mg, UNK
     Route: 061
     Dates: start: 20110124
  21. ANTEBATE [Concomitant]
     Indication: DERMATITIS ATOPIC
     Dosage: 10 mg, UNK
     Route: 061
     Dates: start: 20101020, end: 20111124
  22. CELESTAMINE [Concomitant]
     Indication: DERMATITIS ATOPIC
     Dosage: 6 DF, UNK
     Route: 048
     Dates: start: 20110112
  23. WHITE PETROLEUM [Concomitant]
     Indication: DERMATITIS ATOPIC
     Dosage: 150 mg, UNK
     Dates: start: 20110112
  24. SELBEX [Concomitant]
     Dosage: 150 mg, UNK
     Route: 048
     Dates: start: 20110112
  25. NIZORAL [Concomitant]
     Dates: start: 20100630, end: 20120726

REACTIONS (6)
  - Mycosis fungoides [Not Recovered/Not Resolved]
  - Generalised erythema [Not Recovered/Not Resolved]
  - Drug resistance [Unknown]
  - Tinea versicolour [Recovered/Resolved]
  - Hypertension [Recovered/Resolved]
  - Drug ineffective [Unknown]
